FAERS Safety Report 8367548-9 (Version None)
Quarter: 2012Q2

REPORT INFORMATION
  Report Type: 
  Country: None (occurrence: None)
  Receive Date: 20120517
  Receipt Date: 20120510
  Transmission Date: 20120825
  Serious: Yes (Hospitalization, Other)
  Sender: FDA-Public Use
  Company Number: US-PFIZER INC-2012049543

PATIENT
  Sex: Female

DRUGS (3)
  1. LORTAB [Concomitant]
     Indication: PAIN
     Dosage: UNK
     Dates: start: 20080101, end: 20120101
  2. CHANTIX [Suspect]
     Indication: SMOKING CESSATION THERAPY
     Dosage: 0.5 MG/1 MG
     Dates: start: 20090201, end: 20090401
  3. NAPROXEN [Concomitant]
     Indication: PAIN
     Dosage: UNK
     Dates: start: 20080101, end: 20120101

REACTIONS (10)
  - DEPRESSION [None]
  - AGGRESSION [None]
  - ANXIETY [None]
  - PARANOIA [None]
  - ABNORMAL BEHAVIOUR [None]
  - IRRITABILITY [None]
  - SUICIDAL IDEATION [None]
  - SUICIDE ATTEMPT [None]
  - INTENTIONAL OVERDOSE [None]
  - MOOD SWINGS [None]
